FAERS Safety Report 6332246-X (Version None)
Quarter: 2009Q3

REPORT INFORMATION
  Report Type: 
  Country: None (occurrence: None)
  Receive Date: 20090827
  Receipt Date: 20090827
  Transmission Date: 20100115
  Serious: Yes (Hospitalization)
  Sender: FDA-Public Use
  Company Number: None

PATIENT
  Age: 50 Year

DRUGS (1)
  1. CLOZAPINE [Suspect]
     Indication: SCHIZOAFFECTIVE DISORDER
     Dosage: 175 MG EVERY DAY PO
     Route: 048
     Dates: start: 20090410, end: 20090423

REACTIONS (7)
  - DIZZINESS [None]
  - HEPATIC ENZYME INCREASED [None]
  - HYPERHIDROSIS [None]
  - HYPOPHAGIA [None]
  - ORTHOSTATIC HYPOTENSION [None]
  - PYREXIA [None]
  - TACHYCARDIA [None]
